FAERS Safety Report 7964134-7 (Version None)
Quarter: 2011Q4

REPORT INFORMATION
  Report Type: 
  Country: None (occurrence: None)
  Receive Date: 20111206
  Receipt Date: 20111125
  Transmission Date: 20120403
  Serious: Yes (Congenital Anomaly, Other)
  Sender: FDA-Public Use
  Company Number: 1000025965

PATIENT
  Sex: Male

DRUGS (1)
  1. ESCITALOPRAM OXALATE [Suspect]
     Dosage: 20-30 MG DAILY (1 IN 1 D), TRANSPLACENTAL
     Route: 064

REACTIONS (4)
  - MOTOR DEVELOPMENTAL DELAY [None]
  - SPEECH DISORDER [None]
  - MATERNAL DRUGS AFFECTING FOETUS [None]
  - DEVELOPMENTAL DELAY [None]
